FAERS Safety Report 4552451-2 (Version None)
Quarter: 2005Q1

REPORT INFORMATION
  Report Type: 
  Country: None (occurrence: None)
  Receive Date: 20050114
  Receipt Date: 20030415
  Transmission Date: 20050727
  Serious: No
  Sender: FDA-Public Use
  Company Number: US-BRISTOL-MYERS SQUIBB COMPANY-12242996

PATIENT
  Age: 66 Year
  Sex: Male
  Weight: 145 kg

DRUGS (17)
  1. CISPLATIN [Suspect]
     Indication: TONGUE NEOPLASM MALIGNANT STAGE UNSPECIFIED
     Route: 042
     Dates: start: 20010901
  2. CARBOPLATIN [Suspect]
     Indication: TONGUE NEOPLASM MALIGNANT STAGE UNSPECIFIED
     Dates: start: 20011001, end: 20011101
  3. TAXOL [Concomitant]
     Indication: TONGUE NEOPLASM MALIGNANT STAGE UNSPECIFIED
     Route: 042
     Dates: start: 20010901, end: 20011101
  4. FLUOROURACIL [Concomitant]
     Indication: TONGUE NEOPLASM MALIGNANT STAGE UNSPECIFIED
     Route: 042
     Dates: start: 20010901, end: 20011101
  5. ZOFRAN [Concomitant]
     Indication: PREMEDICATION
  6. COMPAZINE [Concomitant]
     Indication: PREMEDICATION
  7. LEUCOVORIN CALCIUM [Concomitant]
  8. SYNTHROID [Concomitant]
  9. LIPITOR [Concomitant]
  10. PROPRANOLOL HYDROCHLORIDE [Concomitant]
  11. LITHIUM CARBONATE [Concomitant]
  12. CRESTOR [Concomitant]
  13. WARFARIN SODIUM [Concomitant]
  14. ASPIRIN [Concomitant]
  15. MULTI-VITAMIN [Concomitant]
  16. ZOMETA [Concomitant]
  17. VITAMIN [Concomitant]

REACTIONS (3)
  - ASTHENIA [None]
  - FATIGUE [None]
  - NEUROPATHY [None]
